FAERS Safety Report 7438766-9 (Version None)
Quarter: 2011Q2

REPORT INFORMATION
  Report Type: 
  Country: None (occurrence: None)
  Receive Date: 20110426
  Receipt Date: 20110419
  Transmission Date: 20111010
  Serious: Yes (Death)
  Sender: FDA-Public Use
  Company Number: US-CELGENEUS-163-21880-11042434

PATIENT
  Age: 58 Year
  Sex: Male

DRUGS (2)
  1. SERTRALINE [Concomitant]
     Route: 065
  2. REVLIMID [Suspect]
     Indication: AMYLOIDOSIS
     Dosage: 5 MILLIGRAM
     Route: 048
     Dates: start: 20100201, end: 20100301

REACTIONS (2)
  - DEATH [None]
  - AMYLOIDOSIS [None]
